FAERS Safety Report 25051896 (Version 1)
Quarter: 2025Q1

REPORT INFORMATION
  Report Type: Report from Study
  Country: ZA (occurrence: ZA)
  Receive Date: 20250307
  Receipt Date: 20250307
  Transmission Date: 20250408
  Serious: Yes (Other)
  Sender: TEVA
  Company Number: ZA-TEVA-VS-3305712

PATIENT
  Age: 26 Year
  Sex: Female
  Weight: 89.7 kg

DRUGS (1)
  1. COPAXONE [Suspect]
     Active Substance: GLATIRAMER ACETATE
     Indication: Multiple sclerosis
     Route: 058
     Dates: start: 20241213

REACTIONS (4)
  - Haematemesis [Unknown]
  - Hyperemesis gravidarum [Not Recovered/Not Resolved]
  - Weight decreased [Unknown]
  - Maternal exposure during pregnancy [Unknown]

NARRATIVE: CASE EVENT DATE: 20250101
